FAERS Safety Report 4291984-3 (Version None)
Quarter: 2004Q1

REPORT INFORMATION
  Report Type: 
  Country: None (occurrence: None)
  Receive Date: 20040126
  Receipt Date: 20030917
  Transmission Date: 20041129
  Serious: No
  Sender: FDA-Public Use
  Company Number: USA030947581

PATIENT
  Sex: Female

DRUGS (4)
  1. FORTEO [Suspect]
  2. ZANTAC [Concomitant]
  3. VITAMIN D [Concomitant]
  4. CALCIUM [Concomitant]

REACTIONS (1)
  - SKIN DISCOLOURATION [None]
